FAERS Safety Report 25802610 (Version 1)
Quarter: 2025Q3

REPORT INFORMATION
  Report Type: Spontaneous
  Country: AU (occurrence: AU)
  Receive Date: 20250915
  Receipt Date: 20250915
  Transmission Date: 20251020
  Serious: Yes (Other)
  Sender: WAYLIS THERAPEUTICS
  Company Number: AU-WAYLIS-2025-AU-000133

PATIENT

DRUGS (1)
  1. RABEPRAZOLE SODIUM [Suspect]
     Active Substance: RABEPRAZOLE SODIUM
     Indication: Product used for unknown indication
     Route: 048

REACTIONS (3)
  - Acute kidney injury [Unknown]
  - Nephrolithiasis [Unknown]
  - Chronic kidney disease [Unknown]
